FAERS Safety Report 6193752-4 (Version None)
Quarter: 2009Q2

REPORT INFORMATION
  Report Type: 
  Country: None (occurrence: None)
  Receive Date: 20090518
  Receipt Date: 20090506
  Transmission Date: 20091009
  Serious: Yes (Other)
  Sender: FDA-Public Use
  Company Number: KR-PFIZER INC-2009210272

PATIENT

DRUGS (3)
  1. TOLTERODINE TARTRATE [Suspect]
     Route: 048
  2. DOXAZOSIN MESILATE [Suspect]
     Route: 048
  3. DEPAS [Concomitant]
     Route: 048

REACTIONS (3)
  - EYELID OEDEMA [None]
  - MYALGIA [None]
  - OEDEMA PERIPHERAL [None]
